FAERS Safety Report 15897726 (Version 1)
Quarter: 2019Q1

REPORT INFORMATION
  Report Type: Spontaneous
  Country: US (occurrence: US)
  Receive Date: 20190131
  Receipt Date: 20190131
  Transmission Date: 20190417
  Serious: No
  Sender: FDA-Public Use
  Company Number: US-LUPIN PHARMACEUTICALS INC.-2018-00951

PATIENT
  Age: 9 Year
  Sex: Male

DRUGS (1)
  1. CEFPROZIL FOR ORAL SUSPENSION USP 250 MG/5 ML [Suspect]
     Active Substance: CEFPROZIL
     Indication: PRODUCT USED FOR UNKNOWN INDICATION
     Dosage: 250 MG/5 ML, BID
     Route: 048
     Dates: start: 20180131, end: 20180209

REACTIONS (1)
  - Rash generalised [Not Recovered/Not Resolved]

NARRATIVE: CASE EVENT DATE: 20180208
